FAERS Safety Report 15151800 (Version 1)
Quarter: 2018Q3

REPORT INFORMATION
  Report Type: Spontaneous
  Country: US (occurrence: US)
  Receive Date: 20180716
  Receipt Date: 20180716
  Transmission Date: 20181010
  Serious: No
  Sender: FDA-Public Use
  Company Number: US-009507513-1807USA002579

PATIENT
  Age: 74 Year
  Sex: Male

DRUGS (9)
  1. JAKAFI [Suspect]
     Active Substance: RUXOLITINIB
     Indication: PLATELET COUNT INCREASED
  2. IRON (UNSPECIFIED) [Concomitant]
     Active Substance: IRON
     Dosage: UNK
  3. COZAAR [Suspect]
     Active Substance: LOSARTAN POTASSIUM
     Indication: BLOOD PRESSURE ABNORMAL
     Dosage: UNK, UNKNOWN
     Route: 065
  4. AMLODIPINE [Concomitant]
     Active Substance: AMLODIPINE BESYLATE
     Dosage: UNK
  5. HYDROCHLOROTHIAZIDE. [Concomitant]
     Active Substance: HYDROCHLOROTHIAZIDE
     Dosage: UNK
  6. JAKAFI [Suspect]
     Active Substance: RUXOLITINIB
     Indication: MYELOFIBROSIS
     Dosage: 15 MG, BID
     Route: 065
     Dates: start: 201806
  7. ASPIRIN. [Concomitant]
     Active Substance: ASPIRIN
     Dosage: UNK
  8. JAKAFI [Suspect]
     Active Substance: RUXOLITINIB
     Indication: RED BLOOD CELL COUNT INCREASED
     Dosage: 10 MG, BID
     Route: 065
     Dates: start: 20180606, end: 201806
  9. CLONIDINE. [Concomitant]
     Active Substance: CLONIDINE
     Dosage: UNK

REACTIONS (4)
  - Blood pressure increased [Recovering/Resolving]
  - Increased appetite [Unknown]
  - Weight increased [Unknown]
  - Blood potassium increased [Recovering/Resolving]

NARRATIVE: CASE EVENT DATE: 201806
